FAERS Safety Report 8621912-9 (Version None)
Quarter: 2012Q3

REPORT INFORMATION
  Report Type: 
  Country: None (occurrence: None)
  Receive Date: 20120825
  Receipt Date: 20120822
  Transmission Date: 20120928
  Serious: Yes (Other)
  Sender: FDA-Public Use
  Company Number: US-ALLERGAN-1210155US

PATIENT
  Age: 59 Year
  Sex: Male

DRUGS (1)
  1. OZURDEX [Suspect]
     Dosage: 0.7 MG, SINGLE
     Route: 031
     Dates: start: 20120705, end: 20120717

REACTIONS (3)
  - DEVICE DISLOCATION [None]
  - VISUAL ACUITY REDUCED [None]
  - CORNEAL OEDEMA [None]
